FAERS Safety Report 16824970 (Version 2)
Quarter: 2019Q4

REPORT INFORMATION
  Report Type: Spontaneous
  Country: DE (occurrence: DE)
  Receive Date: 20190919
  Receipt Date: 20191001
  Transmission Date: 20200122
  Serious: No
  Sender: FDA-Public Use
  Company Number: DE-TEVA-2019-DE-1108965

PATIENT
  Age: 75 Year
  Sex: Female
  Weight: 60 kg

DRUGS (4)
  1. METRONIDAZOLE. [Suspect]
     Active Substance: METRONIDAZOLE
     Dates: start: 20190825, end: 20190830
  2. CEFUROXIME. [Interacting]
     Active Substance: CEFUROXIME
     Indication: DIVERTICULITIS
     Dosage: 3 X 500 MG
     Route: 048
     Dates: start: 20190830, end: 20190902
  3. CEFUROXIME. [Interacting]
     Active Substance: CEFUROXIME
     Dates: start: 20190825, end: 20190830
  4. METRONIDAZOLE. [Suspect]
     Active Substance: METRONIDAZOLE
     Indication: DIVERTICULITIS
     Dosage: 2 X 400 MG
     Route: 048
     Dates: start: 20190830, end: 20190902

REACTIONS (4)
  - Drug interaction [Unknown]
  - Erythema [Recovered/Resolved]
  - Blood pressure increased [Not Recovered/Not Resolved]
  - Pruritus [Recovered/Resolved]

NARRATIVE: CASE EVENT DATE: 20190825
